FAERS Safety Report 23100520 (Version 1)
Quarter: 2023Q4

REPORT INFORMATION
  Report Type: Spontaneous
  Country: US (occurrence: None)
  Receive Date: 20231020
  Receipt Date: 20231020
  Transmission Date: 20240109
  Serious: Yes (Hospitalization)
  Sender: FDA-Public Use
  Company Number: None

PATIENT
  Age: 69 Year
  Sex: Male
  Weight: 73 kg

DRUGS (1)
  1. NIRMATRELVIR\RITONAVIR [Suspect]
     Active Substance: NIRMATRELVIR\RITONAVIR
     Dosage: OTHER QUANTITY : 2 TAB;?FREQUENCY : TWICE A DAY;?
     Route: 048
     Dates: start: 20230301, end: 20230305

REACTIONS (3)
  - Atrial fibrillation [None]
  - COVID-19 [None]
  - Ventricular tachycardia [None]
